FAERS Safety Report 23545617 (Version 1)
Quarter: 2024Q1

REPORT INFORMATION
  Report Type: Spontaneous
  Country: US (occurrence: None)
  Receive Date: 20240218
  Receipt Date: 20240218
  Transmission Date: 20240409
  Serious: No
  Sender: FDA-Public Use
  Company Number: None

PATIENT
  Age: 23 Year
  Sex: Female
  Weight: 108 kg

DRUGS (6)
  1. BUPROPION HYDROCHLORIDE EXTENDED RELEASE [Suspect]
     Active Substance: BUPROPION HYDROCHLORIDE
     Indication: Attention deficit hyperactivity disorder
     Dosage: OTHER QUANTITY : 1 TABLET(S);?FREQUENCY : DAILY;?
     Route: 048
     Dates: start: 20240110, end: 20240215
  2. VYVANSE [Concomitant]
     Active Substance: LISDEXAMFETAMINE DIMESYLATE
  3. SPIRONOLACTONE [Concomitant]
  4. General womens multivitamin [Concomitant]
  5. B3 vitamin [Concomitant]
  6. ferrous gluconate supplement [Concomitant]

REACTIONS (5)
  - Anxiety [None]
  - Paranoia [None]
  - Abdominal pain upper [None]
  - Vomiting [None]
  - Therapy cessation [None]
